FAERS Safety Report 5279595-4 (Version None)
Quarter: 2007Q1

REPORT INFORMATION
  Report Type: 
  Country: None (occurrence: None)
  Receive Date: 20070328
  Receipt Date: 20070320
  Transmission Date: 20070707
  Serious: Yes (Other)
  Sender: FDA-Public Use
  Company Number: US-PFIZER INC-2007022353

PATIENT
  Sex: Female
  Weight: 68 kg

DRUGS (5)
  1. CELEBREX [Suspect]
     Indication: PAIN IN EXTREMITY
  2. ZIAC [Concomitant]
  3. PRILOSEC [Concomitant]
  4. PRAVACHOL [Concomitant]
  5. TAMOXIFEN CITRATE [Concomitant]

REACTIONS (11)
  - ALANINE AMINOTRANSFERASE INCREASED [None]
  - ANXIETY [None]
  - ASPARTATE AMINOTRANSFERASE INCREASED [None]
  - BODY HEIGHT DECREASED [None]
  - EYE HAEMORRHAGE [None]
  - HYPERSENSITIVITY [None]
  - HYPOTENSION [None]
  - OPTIC NERVE DISORDER [None]
  - RASH PRURITIC [None]
  - URTICARIA [None]
  - VISION BLURRED [None]
